FAERS Safety Report 18507537 (Version 1)
Quarter: 2020Q4

REPORT INFORMATION
  Report Type: Report from Study
  Country: GB (occurrence: GB)
  Receive Date: 20201116
  Receipt Date: 20201116
  Transmission Date: 20210114
  Serious: Yes (Other)
  Sender: FDA-Public Use
  Company Number: GB-PFIZER INC-04H-167-0266621-00

PATIENT

DRUGS (11)
  1. DICLOFENAC [Concomitant]
     Active Substance: DICLOFENAC
     Indication: ANALGESIC THERAPY
     Dosage: 100 MG,
     Route: 054
  2. MORPHINE [Concomitant]
     Active Substance: MORPHINE
     Indication: ANALGESIC THERAPY
     Dosage: 10 MG
     Route: 030
  3. OXYGEN. [Concomitant]
     Active Substance: OXYGEN
     Indication: OXYGEN THERAPY
     Dosage: FREQ: NOT REPORTED, NOT REPORTED
     Route: 055
  4. BUPIVACAINE HCL [Suspect]
     Active Substance: BUPIVACAINE HYDROCHLORIDE
     Dosage: 0.5% AT 0.1ML/KG/HR, FREQUENCY NOT REPORTED
  5. PROPOFOL. [Concomitant]
     Active Substance: PROPOFOL
     Indication: ANAESTHESIA
     Dosage: FREQ: ONCE
  6. BUPIVACAINE HCL [Suspect]
     Active Substance: BUPIVACAINE HYDROCHLORIDE
     Indication: ANALGESIC THERAPY
     Dosage: 20 ML
     Route: 051
  7. FENTANYL. [Concomitant]
     Active Substance: FENTANYL
     Indication: ANAESTHESIA
     Dosage: FREQ: NOT REPORTED, NOT REPORTED
  8. ISOFLURANE. [Concomitant]
     Active Substance: ISOFLURANE
     Indication: ANAESTHESIA
     Dosage: FREQ: NOT REPORTED
     Route: 055
  9. DICLOFENAC [Concomitant]
     Active Substance: DICLOFENAC
     Indication: PREMEDICATION
     Dosage: 150 MG, DAILY
  10. VECURONIUM [Concomitant]
     Active Substance: VECURONIUM BROMIDE
     Indication: ANAESTHESIA
     Dosage: FREQ: NOT REPORTED
  11. MORPHINE [Concomitant]
     Active Substance: MORPHINE
     Indication: PREMEDICATION
     Dosage: FREQ: ONCE
     Route: 040

REACTIONS (1)
  - Atelectasis [Unknown]

NARRATIVE: CASE EVENT DATE: 19980101
